FAERS Safety Report 18666195 (Version 1)
Quarter: 2020Q4

REPORT INFORMATION
  Report Type: Report from Study
  Country: MX (occurrence: MX)
  Receive Date: 20201226
  Receipt Date: 20201226
  Transmission Date: 20210114
  Serious: Yes (Other)
  Sender: FDA-Public Use
  Company Number: MX-UCBSA-2020049429

PATIENT
  Age: 80 Year
  Sex: Male

DRUGS (7)
  1. LIPITOR [Concomitant]
     Active Substance: ATORVASTATIN CALCIUM
     Indication: HYPERCHOLESTEROLAEMIA
     Dosage: 20 MILLIGRAM, ONCE DAILY (QD)
     Dates: start: 2020
  2. COPLAVIX [Concomitant]
     Active Substance: ASPIRIN\CLOPIDOGREL BISULFATE
     Indication: THROMBOSIS PROPHYLAXIS
     Dosage: 1 DOSAGE FORM, ONCE DAILY (QD)
     Route: 048
  3. CLOZAPINE. [Concomitant]
     Active Substance: CLOZAPINE
     Indication: SOMNOLENCE
     Dosage: 1 DOSAGE FORM, ONCE DAILY (QD)
     Route: 048
  4. ALMETEC [OLMESARTAN MEDOXOMIL] [Concomitant]
     Indication: HYPERTENSION
     Dosage: 0.5 DOSAGE FORM, ONCE DAILY (QD)
  5. RASAGILINE. [Concomitant]
     Active Substance: RASAGILINE
     Indication: ARRHYTHMIA
     Dosage: 1 DOSAGE FORM, ONCE DAILY (QD)
  6. ROTIGOTINE [Suspect]
     Active Substance: ROTIGOTINE
     Indication: PARKINSON^S DISEASE
     Dosage: NUBRENZA 4 MG (0.5 PATCH ONCE DAILY)
     Route: 062
     Dates: start: 20201108
  7. AMANTADINE. [Concomitant]
     Active Substance: AMANTADINE HYDROCHLORIDE
     Indication: PARKINSON^S DISEASE
     Dosage: 1 DOSAGE FORM, 2X/DAY (BID)

REACTIONS (2)
  - Off label use [Unknown]
  - Paralysis [Unknown]

NARRATIVE: CASE EVENT DATE: 20201108
